FAERS Safety Report 4898384-3 (Version None)
Quarter: 2006Q1

REPORT INFORMATION
  Report Type: 
  Country: None (occurrence: None)
  Receive Date: 20060202
  Receipt Date: 20060124
  Transmission Date: 20060701
  Serious: Yes (Death, Life-Threatening, Hospitalization, Disabling)
  Sender: FDA-Public Use
  Company Number: RO-JNJFOC-20060104738

PATIENT
  Sex: Male
  Weight: 72 kg

DRUGS (3)
  1. REMICADE [Suspect]
     Dosage: 6 INFUSIONS
     Route: 042
  2. METHOTREXATE [Suspect]
     Route: 048
  3. LEFLUNOMIDE [Suspect]
     Route: 048

REACTIONS (3)
  - ASTHENIA [None]
  - DEATH [None]
  - DISSEMINATED TUBERCULOSIS [None]
